FAERS Safety Report 10706391 (Version 2)
Quarter: 2016Q4

REPORT INFORMATION
  Report Type: Spontaneous
  Country: US (occurrence: US)
  Receive Date: 20150113
  Receipt Date: 20161028
  Transmission Date: 20170206
  Serious: Yes (Hospitalization, Other)
  Sender: FDA-Public Use
  Company Number: US-RANBAXY-2014US-91521

PATIENT
  Age: 55 Year
  Sex: Female

DRUGS (15)
  1. CEFPROZIL. [Concomitant]
     Active Substance: CEFPROZIL
     Indication: PRODUCT USED FOR UNKNOWN INDICATION
     Dosage: 500 MG, BID
     Route: 065
  2. ENOXAPARIN [Concomitant]
     Active Substance: ENOXAPARIN
     Indication: PRODUCT USED FOR UNKNOWN INDICATION
     Dosage: 110 MG, BID
     Route: 058
  3. FAMOTIDINE. [Concomitant]
     Active Substance: FAMOTIDINE
     Indication: PRODUCT USED FOR UNKNOWN INDICATION
     Dosage: 40 MG, DAILY
     Route: 065
  4. DILTIAZEM. [Concomitant]
     Active Substance: DILTIAZEM
     Indication: PRODUCT USED FOR UNKNOWN INDICATION
     Dosage: 30 MG, QID
     Route: 065
  5. PAROXETINE. [Concomitant]
     Active Substance: PAROXETINE
     Indication: PRODUCT USED FOR UNKNOWN INDICATION
     Dosage: 20 MG, DAILY
     Route: 065
  6. OXYCODONE/ACETAMINOPHEN [Interacting]
     Active Substance: ACETAMINOPHEN\OXYCODONE HYDROCHLORIDE
     Indication: MUSCULOSKELETAL PAIN
     Dosage: 1-2 TABLETS EVERY 4 HOURS AS NEEDED (325 MG ACETAMINOPHEN/TABLET)
     Route: 048
  7. CISAPRIDE [Concomitant]
     Active Substance: CISAPRIDE
     Indication: PRODUCT USED FOR UNKNOWN INDICATION
     Dosage: 20 MG, QID
     Route: 065
  8. WARFARIN SODIUM. [Concomitant]
     Active Substance: WARFARIN SODIUM
     Indication: PRODUCT USED FOR UNKNOWN INDICATION
     Dosage: 6 MG, DAILY
     Route: 065
  9. PHENYTOIN. [Interacting]
     Active Substance: PHENYTOIN
     Indication: SEIZURE
     Dosage: 400 MG EVERY OTHER DAY ALTERNATING WITH 300 MG
     Route: 065
  10. HEPARIN [Concomitant]
     Active Substance: HEPARIN SODIUM
     Dosage: UNK
     Route: 058
  11. HYDROCODONE AND ACETAMINOPHEN [Interacting]
     Active Substance: ACETAMINOPHEN\HYDROCODONE
     Indication: MUSCULOSKELETAL PAIN
     Dosage: 1-2 TABLETS EVERY 6 HOURS AS NEEDED
     Route: 048
  12. IBUPROFEN. [Concomitant]
     Active Substance: IBUPROFEN
     Indication: PRODUCT USED FOR UNKNOWN INDICATION
     Dosage: 400 MG, QID (PRN)
     Route: 065
  13. ACETAMINOPHEN. [Suspect]
     Active Substance: ACETAMINOPHEN
     Indication: MUSCULOSKELETAL PAIN
     Dosage: ACETAMINOPHEN 500 MG 1-2 TABLETS EVERY 4-6 HOURS AS NEEDED
     Route: 048
  14. PROPOXYPHENE NAPSYLATE/ACETAMINOPHEN [Interacting]
     Active Substance: ACETAMINOPHEN\PROPOXYPHENE NAPSYLATE
     Indication: MUSCULOSKELETAL PAIN
     Dosage: 1-2 TABLETS EVERY 4-6 HOURS (650 MG ACETAMINOPHEN/TABLET)
     Route: 048
  15. HEPARIN [Concomitant]
     Active Substance: HEPARIN SODIUM
     Indication: PRODUCT USED FOR UNKNOWN INDICATION
     Dosage: UNK
     Route: 042

REACTIONS (3)
  - Overdose [Recovered/Resolved]
  - Drug-induced liver injury [Recovered/Resolved]
  - Drug interaction [Recovered/Resolved]
